FAERS Safety Report 13973404 (Version 4)
Quarter: 2018Q2

REPORT INFORMATION
  Report Type: Report from Study
  Country: US (occurrence: US)
  Receive Date: 20170914
  Receipt Date: 20180618
  Transmission Date: 20180711
  Serious: Yes (Other)
  Sender: FDA-Public Use
  Company Number: US-ASTELLAS-2017US016663

PATIENT
  Sex: Male

DRUGS (4)
  1. ENZALUTAMIDE [Suspect]
     Active Substance: ENZALUTAMIDE
     Route: 048
  2. ENZALUTAMIDE [Suspect]
     Active Substance: ENZALUTAMIDE
     Route: 048
  3. ENZALUTAMIDE [Suspect]
     Active Substance: ENZALUTAMIDE
     Indication: PROSTATE CANCER METASTATIC
     Route: 048
  4. ENZALUTAMIDE [Suspect]
     Active Substance: ENZALUTAMIDE
     Route: 048

REACTIONS (5)
  - Product label issue [Unknown]
  - Product storage error [Unknown]
  - Visual impairment [Unknown]
  - Inappropriate schedule of drug administration [Unknown]
  - Product physical issue [Unknown]
